FAERS Safety Report 7080669-6 (Version None)
Quarter: 2010Q4

REPORT INFORMATION
  Report Type: 
  Country: None (occurrence: None)
  Receive Date: 20101103
  Receipt Date: 20101021
  Transmission Date: 20110411
  Serious: Yes (Other)
  Sender: FDA-Public Use
  Company Number: PHHY2010GR71036

PATIENT
  Age: 84 Year
  Sex: Female

DRUGS (2)
  1. ZADITEN [Suspect]
     Indication: HAEMATOMA
     Dosage: UNK
     Dates: start: 20101021
  2. NOOTROP [Concomitant]

REACTIONS (4)
  - AGITATION [None]
  - AMNESIA [None]
  - BLOOD PRESSURE INCREASED [None]
  - FATIGUE [None]
